FAERS Safety Report 7502195-X (Version None)
Quarter: 2011Q2

REPORT INFORMATION
  Report Type: 
  Country: None (occurrence: None)
  Receive Date: 20110525
  Receipt Date: 20110513
  Transmission Date: 20111010
  Serious: Yes (Other)
  Sender: FDA-Public Use
  Company Number: JP-PFIZER INC-2011083886

PATIENT
  Age: 34 Year
  Sex: Male
  Weight: 70 kg

DRUGS (5)
  1. SUTENT [Suspect]
     Indication: RENAL CELL CARCINOMA
     Dosage: 50 MG, 1X/DAY
     Route: 048
     Dates: start: 20110328, end: 20110415
  2. UBIRON [Concomitant]
     Indication: LIVER DISORDER
     Dosage: 100 MG, 2X/WEEK
     Route: 048
     Dates: start: 20110405
  3. ZOMETA [Concomitant]
     Indication: HYPERCALCAEMIA
     Dosage: 4 MG, 1X/DAY
     Route: 041
     Dates: start: 20110317, end: 20110317
  4. ASTOMIN [Concomitant]
     Indication: COUGH
     Dosage: 10 MG, 1X/DAY
     Route: 048
     Dates: start: 20110324
  5. CALONAL [Concomitant]
     Indication: PYREXIA
     Dosage: 200 MG, 1X/DAY
     Route: 048
     Dates: start: 20110319

REACTIONS (4)
  - PLATELET COUNT DECREASED [None]
  - DUODENAL ULCER [None]
  - NAUSEA [None]
  - ABDOMINAL PAIN [None]
